FAERS Safety Report 4384655-6 (Version None)
Quarter: 2004Q2

REPORT INFORMATION
  Report Type: 
  Country: None (occurrence: None)
  Receive Date: 20040621
  Receipt Date: 20040603
  Transmission Date: 20050107
  Serious: Yes (Hospitalization)
  Sender: FDA-Public Use
  Company Number: 207230

PATIENT
  Age: 45 Year
  Sex: Female
  Weight: 85.4 kg

DRUGS (10)
  1. HERCEPTIN [Suspect]
     Dosage: 2 MG/KG, 1/WEEK, INTRAVENOUS
     Route: 042
     Dates: start: 20030606
  2. DOCETAXEL (DOCETAXEL) [Suspect]
     Dosage: 75 MG/M2, Q3W
     Dates: start: 20030627
  3. CARBOPLATIN [Suspect]
     Dosage: Q3W, INTRAVENOUS
     Route: 042
     Dates: start: 20030627
  4. SOMAC (PANTOPRAZOLE) [Concomitant]
  5. COLOXYL (DOCUSATE SODIUM) [Concomitant]
  6. OXYCONTIN [Concomitant]
  7. DIPHENHYDRAMINE (DIPHENHYDRAMINE NOS) [Concomitant]
  8. PANADOL (ACETAMINOPHEN) [Concomitant]
  9. DEXAMETHASONE [Concomitant]
  10. RED BLOOD CELL TRANSFUSION (BLOOD CELLS, RED) [Concomitant]

REACTIONS (6)
  - ANOREXIA [None]
  - DIZZINESS [None]
  - FEELING ABNORMAL [None]
  - HYPOTENSION [None]
  - LETHARGY [None]
  - NEUTROPENIA [None]
